FAERS Safety Report 5521925-X (Version None)
Quarter: 2007Q4

REPORT INFORMATION
  Report Type: 
  Country: None (occurrence: None)
  Receive Date: 20071120
  Receipt Date: 20061128
  Transmission Date: 20080405
  Serious: No
  Sender: FDA-Public Use
  Company Number: US-BRISTOL-MYERS SQUIBB COMPANY-13596382

PATIENT
  Sex: Female

DRUGS (1)
  1. AVALIDE [Suspect]
     Indication: CARDIOVASCULAR DISORDER

REACTIONS (2)
  - DRUG INEFFECTIVE [None]
  - NOCTURIA [None]
